FAERS Safety Report 8622438 (Version 3)
Quarter: 2012Q4

REPORT INFORMATION
  Report Type: 
  Country: GB (occurrence: GB)
  Receive Date: 20120619
  Receipt Date: 20120926
  Transmission Date: 20130627
  Serious: Yes (Death, Other)
  Sender: FDA-Public Use
  Company Number: GB-ROCHE-1079593

PATIENT
  Age: 95 Year
  Sex: Male

DRUGS (7)
  1. LUCENTIS [Suspect]
     Indication: AGE-RELATED MACULAR DEGENERATION
     Route: 050
     Dates: start: 20100413
  2. LUCENTIS [Suspect]
     Route: 050
     Dates: start: 20110720
  3. OMEPRAZOLE [Concomitant]
     Indication: PROPHYLAXIS AGAINST GASTROINTESTINAL ULCER
     Route: 065
     Dates: start: 2011
  4. ASPIRIN [Concomitant]
     Indication: PROPHYLAXIS
     Route: 065
     Dates: start: 2001
  5. BUMETANIDE [Concomitant]
     Indication: CARDIAC FAILURE CONGESTIVE
     Route: 065
     Dates: start: 2002
  6. DIGOXIN [Concomitant]
     Indication: ATRIAL FIBRILLATION
     Route: 065
     Dates: start: 2011
  7. CLOPIDOGREL [Concomitant]
     Indication: PROPHYLAXIS
     Route: 065
     Dates: start: 2011

REACTIONS (4)
  - Cardiac failure congestive [Fatal]
  - Pneumonia [Fatal]
  - Pleural effusion [Unknown]
  - Acute myocardial infarction [Unknown]
